FAERS Safety Report 4392801-3 (Version None)
Quarter: 2004Q3

REPORT INFORMATION
  Report Type: 
  Country: None (occurrence: None)
  Receive Date: 20040702
  Receipt Date: 20040624
  Transmission Date: 20050211
  Serious: Yes (Hospitalization)
  Sender: FDA-Public Use
  Company Number: 2004CG01167

PATIENT
  Age: 80 Year
  Sex: Female
  Weight: 70 kg

DRUGS (10)
  1. OMEPRAZOLE [Suspect]
     Dosage: 20 MG DAILY; PO
     Route: 048
     Dates: start: 20040517
  2. ALTIM [Suspect]
     Dosage: 1 DF ONCE; ED
     Route: 008
     Dates: start: 20040528, end: 20040528
  3. APRANAX [Suspect]
     Dosage: 550 MG BID; PO
     Route: 048
     Dates: start: 20040517, end: 20040528
  4. CORTANCYL [Suspect]
     Dosage: NI
     Dates: start: 20040521, end: 20040528
  5. LOVENOX [Suspect]
     Dosage: 40 MG DAILY; SQ
     Dates: start: 20040517, end: 20040603
  6. MIACALCIN [Suspect]
     Dosage: 80 IU DAILY; SQ
     Dates: start: 20040519, end: 20040603
  7. TOPALGIC ^HOUDE^ [Suspect]
     Dosage: 1 DF BID; PO
     Route: 048
     Dates: start: 20040517
  8. ISORYTHM [Suspect]
     Dosage: 125 MG DAILY; PO
     Route: 048
     Dates: start: 19940101
  9. ZOLPIDEM TARTRATE [Suspect]
     Dosage: 0.5 DF DAILY; PO
     Route: 048
     Dates: start: 20030101
  10. ... [Concomitant]

REACTIONS (3)
  - PRURITUS [None]
  - PURPURA [None]
  - TOXIC SKIN ERUPTION [None]
